FAERS Safety Report 11719584 (Version 2)
Quarter: 2015Q4

REPORT INFORMATION
  Report Type: Other
  Country: AU (occurrence: AU)
  Receive Date: 20151110
  Receipt Date: 20151209
  Transmission Date: 20160304
  Serious: Yes (Other)
  Sender: FDA-Public Use
  Company Number: AU-COL_21155_2015

PATIENT
  Sex: Female

DRUGS (1)
  1. COLGATE TOTAL WHITENING [Suspect]
     Active Substance: SILICON DIOXIDE\SODIUM FLUORIDE\TRICLOSAN
     Indication: PRODUCT USED FOR UNKNOWN INDICATION
     Dosage: LENGTH OF TOOTHBRUSH/ BID/
     Route: 048
     Dates: start: 2014, end: 2015

REACTIONS (3)
  - Systemic lupus erythematosus [Unknown]
  - Gingival pain [Not Recovered/Not Resolved]
  - Breath odour [Recovering/Resolving]

NARRATIVE: CASE EVENT DATE: 2015
